FAERS Safety Report 17734146 (Version 2)
Quarter: 2020Q2

REPORT INFORMATION
  Report Type: Spontaneous
  Country: US (occurrence: US)
  Receive Date: 20200501
  Receipt Date: 20200505
  Transmission Date: 20200714
  Serious: No
  Sender: FDA-Public Use
  Company Number: US-PFIZER INC-2019516739

PATIENT
  Age: 77 Year
  Sex: Female
  Weight: 47.17 kg

DRUGS (1)
  1. PREMARIN [Suspect]
     Active Substance: ESTROGENS, CONJUGATED
     Dosage: 0.625 MG, CYCLIC(1 TABLET DAILY EXCEPT ON SUNDAY, 6 TIMES A WEEK, HOLD ON THE 7TH DAY)
     Route: 048

REACTIONS (3)
  - Therapeutic response unexpected [Unknown]
  - Feeling abnormal [Unknown]
  - Depression [Unknown]
